FAERS Safety Report 25746933 (Version 3)
Quarter: 2025Q3

REPORT INFORMATION
  Report Type: Spontaneous
  Country: US (occurrence: US)
  Receive Date: 20250901
  Receipt Date: 20250922
  Transmission Date: 20251020
  Serious: No
  Sender: SANOFI AVENTIS
  Company Number: US-SA-2025SA259615

PATIENT
  Age: 45 Year
  Sex: Male

DRUGS (11)
  1. DUPIXENT [Suspect]
     Active Substance: DUPILUMAB
     Indication: Eosinophilic oesophagitis
     Dosage: 300 MG, QW
     Route: 058
     Dates: start: 20250621
  2. ALEVE [Concomitant]
     Active Substance: NAPROXEN SODIUM
  3. CETIRIZINE HCL [Concomitant]
     Active Substance: CETIRIZINE HYDROCHLORIDE
  4. EPIPEN [Concomitant]
     Active Substance: EPINEPHRINE
  5. MAGNESIUM [Concomitant]
     Active Substance: MAGNESIUM
  6. MELATONIN [Concomitant]
     Active Substance: MELATONIN
  7. ONDANSETRON [Concomitant]
     Active Substance: ONDANSETRON
  8. PEPCID AC [Concomitant]
     Active Substance: FAMOTIDINE
  9. VITAMIN D3 [Concomitant]
     Active Substance: CHOLECALCIFEROL
  10. DICLOFENAC [Concomitant]
     Active Substance: DICLOFENAC
  11. MENAQUINONE 6 [Concomitant]
     Active Substance: MENAQUINONE 6

REACTIONS (9)
  - Ear infection [Unknown]
  - Eosinophilic oesophagitis [Unknown]
  - Rebound effect [Unknown]
  - Injection site pain [Unknown]
  - Injection site bruising [Unknown]
  - Injection site erythema [Unknown]
  - Injection site swelling [Unknown]
  - Accidental exposure to product [Unknown]
  - Exposure via skin contact [Unknown]

NARRATIVE: CASE EVENT DATE: 20250101
